FAERS Safety Report 10500165 (Version 2)
Quarter: 2014Q4

REPORT INFORMATION
  Report Type: Spontaneous
  Country: US (occurrence: US)
  Receive Date: 20141006
  Receipt Date: 20141006
  Transmission Date: 20150528
  Serious: No
  Sender: FDA-Public Use
  Company Number: US-AMGEN INC.-USASP2014037526

PATIENT
  Age: 78 Year
  Sex: Female
  Weight: 60.77 kg

DRUGS (12)
  1. CVS STOOL SOFTENER [Concomitant]
     Dosage: 1 PO DAILY PRN
  2. IRON                               /00023503/ [Concomitant]
     Active Substance: IRON
     Dosage: 325 MG, QID
  3. VITAMIN B12 [Concomitant]
     Active Substance: CYANOCOBALAMIN
     Dosage: 1000 MUG, QID
  4. PROLIA [Suspect]
     Active Substance: DENOSUMAB
     Indication: OSTEOPOROSIS POSTMENOPAUSAL
     Dosage: 1 ML, Q6MO
     Route: 058
     Dates: start: 20131205, end: 20140514
  5. MULTIVITAMIN                       /00097801/ [Concomitant]
     Active Substance: VITAMINS
     Dosage: 1 TAB PO Q DAY
  6. CALCIUM                            /07357001/ [Concomitant]
     Dosage: 1500 MG, QID
  7. CHONDROITIN SULFATE (BOVINE)\GLUCOSAMINE SULFATE [Concomitant]
     Active Substance: CHONDROITIN SULFATE (BOVINE)\GLUCOSAMINE SULFATE
  8. SIMVASTATIN. [Concomitant]
     Active Substance: SIMVASTATIN
     Dosage: 40 MG, QID
  9. RECLAST [Concomitant]
     Active Substance: ZOLEDRONIC ACID
     Indication: OSTEOPOROSIS
     Dosage: 5MG IV OVER 15 MINUTES ONCE ANNUALLY
     Route: 042
  10. FISH OIL [Concomitant]
     Active Substance: FISH OIL
     Dosage: 1 CAP PO DAILY
  11. ASPIRIN EC [Concomitant]
     Active Substance: ASPIRIN
     Dosage: 81 MG, QID
  12. MIRALAX [Concomitant]
     Active Substance: POLYETHYLENE GLYCOL 3350

REACTIONS (10)
  - Myalgia [Recovering/Resolving]
  - Upper respiratory tract infection [Unknown]
  - Arthritis [Unknown]
  - Chest pain [Unknown]
  - Haemangioma [Unknown]
  - Neck pain [Unknown]
  - Influenza like illness [Recovering/Resolving]
  - Paraesthesia [Unknown]
  - Fatigue [Unknown]
  - Hyperlipidaemia [Unknown]
